FAERS Safety Report 13982916 (Version 2)
Quarter: 2017Q4

REPORT INFORMATION
  Report Type: Report from Study
  Country: US (occurrence: US)
  Receive Date: 20170918
  Receipt Date: 20171108
  Transmission Date: 20180321
  Serious: Yes (Hospitalization)
  Sender: FDA-Public Use
  Company Number: US-TAIHO ONCOLOGY INC-EU-2017-01210

PATIENT
  Age: 65 Year
  Sex: Male
  Weight: 56.3 kg

DRUGS (23)
  1. PROAIR HFA [Concomitant]
     Active Substance: ALBUTEROL SULFATE
     Dosage: NI
  2. COREG [Concomitant]
     Active Substance: CARVEDILOL
     Dosage: NI
  3. CARDIZEM [Concomitant]
     Active Substance: DILTIAZEM HYDROCHLORIDE
     Dosage: NI
  4. HYDROCODONE [Concomitant]
     Active Substance: HYDROCODONE
     Dosage: NI
  5. LEFLUNOMIDE. [Concomitant]
     Active Substance: LEFLUNOMIDE
     Dosage: NI
  6. FUROSEMIDE. [Concomitant]
     Active Substance: FUROSEMIDE
     Dosage: NI
  7. GABAPENTIN. [Concomitant]
     Active Substance: GABAPENTIN
     Dosage: NI
  8. ISOSORBIDE. [Concomitant]
     Active Substance: ISOSORBIDE
     Dosage: NI
  9. BENZONATATE. [Concomitant]
     Active Substance: BENZONATATE
     Dosage: NI
  10. MAGNESIUM [Concomitant]
     Active Substance: MAGNESIUM
     Dosage: NI
  11. PROTONIX [Concomitant]
     Active Substance: PANTOPRAZOLE SODIUM
     Dosage: NI
  12. COLECALCIFEROL [Concomitant]
     Active Substance: CHOLECALCIFEROL
     Dosage: NI
  13. DOXYCYCLINE. [Concomitant]
     Active Substance: DOXYCYCLINE
     Dosage: NI
  14. DIFLUCAN [Concomitant]
     Active Substance: FLUCONAZOLE
     Dosage: NI
  15. FISH OIL [Concomitant]
     Active Substance: FISH OIL
     Dosage: NI
  16. NYSTATIN. [Concomitant]
     Active Substance: NYSTATIN
     Dosage: NI
  17. LONSURF [Suspect]
     Active Substance: TIPIRACIL HYDROCHLORIDE\TRIFLURIDINE
     Indication: COLON CANCER
     Dosage: CYCLE 2 STARTED ON 10AUG2017
     Route: 048
     Dates: start: 20170713, end: 20170820
  18. SALBUTAMOL [Concomitant]
     Active Substance: ALBUTEROL
     Dosage: NI
  19. DULERA [Concomitant]
     Active Substance: FORMOTEROL FUMARATE DIHYDRATE\MOMETASONE FUROATE
     Dosage: NI
  20. MEGESTROL [Concomitant]
     Active Substance: MEGESTROL
     Dosage: NI
  21. POTASSIUM CHLORIDE. [Concomitant]
     Active Substance: POTASSIUM CHLORIDE
     Dosage: NI
  22. COMPAZINE [Concomitant]
     Active Substance: PROCHLORPERAZINE MALEATE
     Dosage: NI
  23. WARFARIN [Concomitant]
     Active Substance: WARFARIN
     Dosage: NI

REACTIONS (5)
  - Heart rate increased [Unknown]
  - Septic shock [Recovered/Resolved]
  - Pyrexia [Recovered/Resolved]
  - Asthenia [Recovering/Resolving]
  - Dyspnoea [Unknown]

NARRATIVE: CASE EVENT DATE: 2017
